FAERS Safety Report 11186707 (Version 1)
Quarter: 2015Q2

REPORT INFORMATION
  Report Type: Spontaneous
  Country: US (occurrence: US)
  Receive Date: 20150613
  Receipt Date: 20150613
  Transmission Date: 20150821
  Serious: Yes (Congenital Anomaly, Other)
  Sender: FDA-Public Use
  Company Number: US-APOTEX-2015AP007876

PATIENT
  Sex: Male

DRUGS (1)
  1. PAXIL [Suspect]
     Active Substance: PAROXETINE HYDROCHLORIDE
     Indication: DEPRESSION
     Route: 064

REACTIONS (6)
  - Bicuspid aortic valve [Recovered/Resolved]
  - Attention deficit/hyperactivity disorder [Unknown]
  - Congenital aortic valve stenosis [Recovered/Resolved]
  - Bipolar disorder [Unknown]
  - Deafness unilateral [Unknown]
  - Foetal exposure during pregnancy [Unknown]
